FAERS Safety Report 10230726 (Version 3)
Quarter: 2014Q3

REPORT INFORMATION
  Report Type: Spontaneous
  Country: GB (occurrence: GB)
  Receive Date: 20140611
  Receipt Date: 20140911
  Transmission Date: 20150326
  Serious: Yes (Hospitalization, Other)
  Sender: FDA-Public Use
  Company Number: GB-PFIZER INC-2014011074

PATIENT
  Age: 19 Year
  Sex: Female

DRUGS (2)
  1. MIFEGYNE [Suspect]
     Active Substance: MIFEPRISTONE
     Indication: ABORTION INDUCED
     Dosage: 200 MG, SINGLE
     Route: 048
     Dates: start: 20130920, end: 20130920
  2. MISOPROSTOL. [Suspect]
     Active Substance: MISOPROSTOL
     Indication: ABORTION INDUCED
     Dosage: 200 UG, SINGLE
     Route: 048
     Dates: start: 20130920, end: 20130920

REACTIONS (7)
  - Incorrect dose administered [Unknown]
  - Metrorrhagia [Recovered/Resolved]
  - Off label use [Unknown]
  - Premature labour [Recovered/Resolved]
  - Uterine prolapse [Recovered/Resolved]
  - Anaemia [Recovered/Resolved]
  - Drug ineffective for unapproved indication [Unknown]

NARRATIVE: CASE EVENT DATE: 20130920
